FAERS Safety Report 12275624 (Version 2)
Quarter: 2016Q3

REPORT INFORMATION
  Report Type: Spontaneous
  Country: US (occurrence: US)
  Receive Date: 20160418
  Receipt Date: 20160705
  Transmission Date: 20161109
  Serious: Yes (Death, Hospitalization, Other)
  Sender: FDA-Public Use
  Company Number: US-BRISTOL-MYERS SQUIBB COMPANY-BMS-2016-027898

PATIENT
  Age: 77 Year
  Sex: Female

DRUGS (2)
  1. OPDIVO [Suspect]
     Active Substance: NIVOLUMAB
     Indication: METASTATIC OCULAR MELANOMA
     Dosage: 3 MG/KG, Q2WK
     Route: 042
     Dates: start: 20160223
  2. OPDIVO [Suspect]
     Active Substance: NIVOLUMAB
     Dosage: 3 UNK, UNK
     Route: 042
     Dates: start: 20160308

REACTIONS (2)
  - Autoimmune hepatitis [Unknown]
  - Death [Fatal]
